FAERS Safety Report 7883298-7 (Version None)
Quarter: 2011Q4

REPORT INFORMATION
  Report Type: 
  Country: None (occurrence: None)
  Receive Date: 20111031
  Receipt Date: 20111024
  Transmission Date: 20120403
  Serious: Yes (Other)
  Sender: FDA-Public Use
  Company Number: 2011MA015452

PATIENT
  Age: 44 Year
  Sex: Female

DRUGS (4)
  1. CLONAZEPAM [Suspect]
  2. TIZANIDINE HCL [Suspect]
     Dosage: ; PO
     Route: 048
  3. BUTANS [Suspect]
  4. PERCOCET [Suspect]

REACTIONS (3)
  - FLUID RETENTION [None]
  - SLEEP APNOEA SYNDROME [None]
  - OEDEMA [None]
